FAERS Safety Report 10094304 (Version 2)
Quarter: 2014Q2

REPORT INFORMATION
  Report Type: Spontaneous
  Country: US (occurrence: None)
  Receive Date: 20140418
  Receipt Date: 20140528
  Transmission Date: 20141212
  Serious: Yes (Death)
  Sender: FDA-Public Use
  Company Number: UTC-047173

PATIENT
  Age: 78 Year
  Sex: Female

DRUGS (1)
  1. REMODULIN [Suspect]
     Indication: PULMONARY ARTERIAL HYPERTENSION
     Dosage: (0.032 MCG, 1 IN 1 MIN)
     Route: 041
     Dates: start: 20080307

REACTIONS (3)
  - Death [None]
  - Acute respiratory failure [None]
  - Chronic respiratory failure [None]
